FAERS Safety Report 6475132-7 (Version None)
Quarter: 2009Q4

REPORT INFORMATION
  Report Type: 
  Country: None (occurrence: None)
  Receive Date: 20091204
  Receipt Date: 20090505
  Transmission Date: 20100525
  Serious: Yes (Other)
  Sender: FDA-Public Use
  Company Number: VE-ELI_LILLY_AND_COMPANY-VE200903005825

PATIENT
  Age: 50 Year
  Sex: Female

DRUGS (2)
  1. CYMBALTA [Suspect]
     Indication: DEPRESSION
     Dosage: 60 MG, UNK
     Route: 065
  2. CYMBALTA [Suspect]
     Dosage: 60 MG, EACH EVENING
     Route: 065
     Dates: start: 20080101

REACTIONS (3)
  - URETHRAL DILATATION [None]
  - URETHRAL DISORDER [None]
  - URINARY INCONTINENCE [None]
